FAERS Safety Report 8539712 (Version 2)
Quarter: 2013Q1

REPORT INFORMATION
  Report Type: Spontaneous
  Country: US (occurrence: US)
  Receive Date: 20120502
  Receipt Date: 20130103
  Transmission Date: 20140127
  Serious: Yes (Hospitalization)
  Sender: FDA-Public Use
  Company Number: US-BAYER-2012-041627

PATIENT
  Age: 31 Year
  Sex: Female
  Weight: 64 kg

DRUGS (6)
  1. YAZ [Suspect]
     Indication: CONTRACEPTION
     Dosage: UNK
     Dates: start: 2007, end: 2010
  2. YAZ [Suspect]
     Indication: PREMENSTRUAL SYNDROME
  3. SERTRALINE [Concomitant]
     Indication: DEPRESSION
     Dosage: 50 MG, UNK
  4. IBUPROFEN [Concomitant]
     Indication: PAIN
     Dosage: 800 MG, EVERY 8 HOUR AS NEEDED
     Route: 048
  5. ZOLOFT [Concomitant]
     Dosage: 50 MG, QD, DAILY
     Route: 048
  6. LORTAB [Concomitant]

REACTIONS (5)
  - Cholelithiasis [None]
  - Pain [None]
  - Injury [None]
  - General physical health deterioration [None]
  - Emotional distress [None]
